FAERS Safety Report 7103027-4 (Version None)
Quarter: 2010Q4

REPORT INFORMATION
  Report Type: 
  Country: None (occurrence: None)
  Receive Date: 20101108
  Receipt Date: 20101022
  Transmission Date: 20110411
  Serious: Yes (Other)
  Sender: FDA-Public Use
  Company Number: 2010US004424

PATIENT
  Age: 65 Year
  Sex: Female

DRUGS (4)
  1. AMBISOME [Suspect]
     Indication: FUNGAL INFECTION
     Dosage: 150 MG, UID/QD, IV NOS
     Route: 042
     Dates: start: 20100827
  2. FUNGUARD (MICAFUNGIN) INJECTION [Suspect]
     Indication: FUNGAL INFECTION
     Dosage: 150 MG, UID/QD
     Dates: start: 20100822
  3. DOPAMINE HYDROCHLORIDE [Concomitant]
  4. MORPHINE [Concomitant]

REACTIONS (3)
  - DRUG INEFFECTIVE [None]
  - HALLUCINATION, VISUAL [None]
  - PYREXIA [None]
